FAERS Safety Report 6672809-5 (Version None)
Quarter: 2010Q2

REPORT INFORMATION
  Report Type: 
  Country: None (occurrence: None)
  Receive Date: 20100408
  Receipt Date: 20100405
  Transmission Date: 20101027
  Serious: Yes (Life-Threatening, Hospitalization, Other)
  Sender: FDA-Public Use
  Company Number: JP-SANOFI-AVENTIS-2010SA008671

PATIENT
  Age: 62 Year
  Sex: Female

DRUGS (4)
  1. TAXOTERE [Suspect]
     Indication: OVARIAN CANCER
     Route: 042
     Dates: start: 20100204, end: 20100204
  2. CARBOPLATIN [Suspect]
     Indication: OVARIAN CANCER
     Route: 042
     Dates: start: 20100204, end: 20100204
  3. DEXAMETHASONE SODIUM PHOSPHATE [Concomitant]
     Indication: PREMEDICATION
     Route: 042
     Dates: start: 20100204, end: 20100204
  4. RAMELTEON [Concomitant]
     Indication: PREMEDICATION
     Route: 042
     Dates: start: 20100204, end: 20100204

REACTIONS (2)
  - BONE MARROW FAILURE [None]
  - HYPONATRAEMIA [None]
